FAERS Safety Report 9383481 (Version 1)
Quarter: 2013Q3

REPORT INFORMATION
  Report Type: Spontaneous
  Country: PH (occurrence: PH)
  Receive Date: 20130704
  Receipt Date: 20130704
  Transmission Date: 20140515
  Serious: Yes (Hospitalization, Other)
  Sender: FDA-Public Use
  Company Number: PH-MERCK-1307PHL000679

PATIENT
  Sex: 0

DRUGS (1)
  1. INVANZ [Suspect]

REACTIONS (2)
  - Cerebrovascular accident [Unknown]
  - Convulsion [Unknown]
